FAERS Safety Report 12919306 (Version 1)
Quarter: 2016Q4

REPORT INFORMATION
  Report Type: Report from Study
  Country: None (occurrence: DE)
  Receive Date: 20161108
  Receipt Date: 20161108
  Transmission Date: 20170207
  Serious: Yes (Other)
  Sender: FDA-Public Use
  Company Number: DE-ABBVIE-16K-062-1771567-00

PATIENT
  Age: 66 Year
  Sex: Female

DRUGS (1)
  1. HUMIRA [Suspect]
     Active Substance: ADALIMUMAB
     Indication: PSORIASIS
     Route: 058
     Dates: start: 20090501

REACTIONS (5)
  - Psoriasis [Not Recovered/Not Resolved]
  - Skin disorder [Unknown]
  - Heavy exposure to ultraviolet light [Unknown]
  - Rash macular [Not Recovered/Not Resolved]
  - Rosacea [Unknown]

NARRATIVE: CASE EVENT DATE: 201609
